FAERS Safety Report 14706700 (Version 5)
Quarter: 2019Q3

REPORT INFORMATION
  Report Type: Report from Study
  Country: JP (occurrence: JP)
  Receive Date: 20180402
  Receipt Date: 20190905
  Transmission Date: 20191004
  Serious: Yes (Hospitalization)
  Sender: FDA-Public Use
  Company Number: JP-SHIRE-JP201811496

PATIENT
  Age: 1 Year
  Sex: Male
  Weight: 5.9 kg

DRUGS (30)
  1. FAMOTIDINE. [Concomitant]
     Active Substance: FAMOTIDINE
     Indication: PRODUCT USED FOR UNKNOWN INDICATION
     Dosage: 5 MG, UNKNOWN
     Route: 048
  2. NEODOPASTON [Concomitant]
     Active Substance: CARBIDOPA\LEVODOPA
     Dosage: 60 MG, UNKNOWN
     Route: 048
     Dates: start: 20170905
  3. TIZANIDINE. [Concomitant]
     Active Substance: TIZANIDINE
     Dosage: 1 MG, UNKNOWN
     Route: 048
     Dates: start: 20171003
  4. DEPAKENE [Concomitant]
     Active Substance: VALPROIC ACID
     Indication: GAUCHER^S DISEASE TYPE II
     Dosage: 2.4 ML, UNKNOWN
     Route: 048
     Dates: start: 20171003, end: 20171017
  5. MEROPEN                            /01250501/ [Concomitant]
     Active Substance: MEROPENEM
     Indication: PROPHYLAXIS
     Dosage: 270 MG, UNKNOWN
     Route: 042
     Dates: start: 20171018
  6. FLUMARIN                           /00780601/ [Concomitant]
     Indication: PROPHYLAXIS
     Route: 042
     Dates: start: 20171017, end: 20171017
  7. VELAGLUCERASE ALFA [Suspect]
     Active Substance: VELAGLUCERASE ALFA
     Dosage: 60 IU/KG, 1X/2WKS
     Route: 042
     Dates: start: 20170420, end: 20170711
  8. DANTRIUM [Concomitant]
     Active Substance: DANTROLENE SODIUM
     Indication: GAUCHER^S DISEASE TYPE II
     Dosage: 5 MILLIGRAM, UNKNOWN
     Route: 048
  9. INCREMIN                           /00023544/ [Concomitant]
     Indication: MINERAL SUPPLEMENTATION
     Dosage: 3 ML, UNKNOWN
     Route: 048
  10. PHENOBAL                           /00023201/ [Concomitant]
     Active Substance: PHENOBARBITAL
     Indication: GAUCHER^S DISEASE TYPE II
     Dosage: 6 ML, UNKNOWN
     Route: 048
  11. MOSAPRIDE [Concomitant]
     Active Substance: MOSAPRIDE
     Indication: PRODUCT USED FOR UNKNOWN INDICATION
     Dosage: 1.5 MG, UNKNOWN
     Route: 048
  12. TIZANIDINE. [Concomitant]
     Active Substance: TIZANIDINE
     Indication: GAUCHER^S DISEASE TYPE II
     Dosage: 0.5 MG, UNKNOWN
     Route: 048
     Dates: start: 20170822, end: 20171003
  13. SODIUM VALPROATE [Concomitant]
     Active Substance: VALPROATE SODIUM
     Indication: PRODUCT USED FOR UNKNOWN INDICATION
     Dosage: UNK, UNKNOWN
     Route: 065
  14. LEVETIRACETAM. [Concomitant]
     Active Substance: LEVETIRACETAM
     Indication: PRODUCT USED FOR UNKNOWN INDICATION
     Dosage: UNK, UNKNOWN
     Route: 065
  15. ELIXIRMETHASONE [Concomitant]
     Indication: GAUCHER^S DISEASE TYPE II
     Dosage: 6 ML, UNKNOWN
     Route: 048
  16. GABAPEN [Concomitant]
     Active Substance: GABAPENTIN
     Indication: GAUCHER^S DISEASE TYPE II
     Dosage: 300 MG, UNKNOWN
     Route: 048
  17. GABAPEN [Concomitant]
     Active Substance: GABAPENTIN
     Dosage: 350 MG, UNKNOWN
     Route: 048
     Dates: start: 20170711, end: 20170725
  18. MIYA-BM [Concomitant]
     Active Substance: CLOSTRIDIUM BUTYRICUM SPORES STRAIN M-55
     Indication: PRODUCT USED FOR UNKNOWN INDICATION
     Dosage: 0.6 G, UNKNOWN
     Route: 048
  19. CLONAZEPAM. [Concomitant]
     Active Substance: CLONAZEPAM
     Indication: PRODUCT USED FOR UNKNOWN INDICATION
     Dosage: UNK, UNKNOWN
     Route: 065
  20. GABAPEN [Concomitant]
     Active Substance: GABAPENTIN
     Dosage: 375 MG, UNKNOWN
     Route: 048
     Dates: start: 20170725, end: 20170822
  21. L CARTIN FF [Concomitant]
     Active Substance: LEVOCARNITINE
     Indication: PROPHYLAXIS
     Dosage: 3 ML, UNKNOWN
     Route: 048
     Dates: start: 20171017
  22. NEODOPASTON [Concomitant]
     Active Substance: CARBIDOPA\LEVODOPA
     Indication: GAUCHER^S DISEASE TYPE II
     Dosage: 40 MG, UNKNOWN
     Route: 048
     Dates: start: 20170808, end: 20170905
  23. VELAGLUCERASE ALFA [Suspect]
     Active Substance: VELAGLUCERASE ALFA
     Indication: GAUCHER^S DISEASE TYPE II
     Dosage: 800 INTERNATIONAL UNIT, 1X/2WKS
     Route: 065
     Dates: start: 20180305
  24. VELAGLUCERASE ALFA [Suspect]
     Active Substance: VELAGLUCERASE ALFA
     Dosage: 100 IU/KG, 1X/2WKS
     Route: 042
     Dates: start: 20170725, end: 20171016
  25. BACLOFEN. [Concomitant]
     Active Substance: BACLOFEN
     Indication: PRODUCT USED FOR UNKNOWN INDICATION
     Dosage: UNK, UNKNOWN
     Route: 065
  26. GABAPEN [Concomitant]
     Active Substance: GABAPENTIN
     Dosage: 400 MG, UNKNOWN
     Route: 048
     Dates: start: 20170822, end: 20171017
  27. GABAPEN [Concomitant]
     Active Substance: GABAPENTIN
     Dosage: 300 MG, UNKNOWN
     Route: 048
     Dates: start: 20171017
  28. MIYA-BM [Concomitant]
     Active Substance: CLOSTRIDIUM BUTYRICUM SPORES STRAIN M-55
     Dosage: 1 G, UNKNOWN
     Route: 048
     Dates: start: 20170711
  29. DEPAKENE [Concomitant]
     Active Substance: VALPROIC ACID
     Dosage: 3 ML, UNKNOWN
     Route: 048
     Dates: start: 20171017
  30. BROMHEXINE [Concomitant]
     Active Substance: BROMHEXINE
     Indication: PROPHYLAXIS
     Dosage: 1 ML, UNKNOWN
     Route: 055

REACTIONS (1)
  - Product use issue [Recovered/Resolved]

NARRATIVE: CASE EVENT DATE: 20180320
